FAERS Safety Report 9278761 (Version 1)
Quarter: 2013Q2

REPORT INFORMATION
  Report Type: Spontaneous
  Country: US (occurrence: US)
  Receive Date: 20130508
  Receipt Date: 20130508
  Transmission Date: 20140414
  Serious: Yes (Hospitalization, Other)
  Sender: FDA-Public Use
  Company Number: US-ABBOTT-13P-163-1084141-00

PATIENT
  Age: 39 Year
  Sex: Female

DRUGS (1)
  1. HUMIRA [Suspect]
     Indication: RHEUMATOID ARTHRITIS

REACTIONS (7)
  - Haemorrhagic stroke [Recovered/Resolved with Sequelae]
  - Pneumonia [Recovered/Resolved]
  - Pulmonary oedema [Recovered/Resolved]
  - Histoplasmosis [Recovering/Resolving]
  - Disability [Not Recovered/Not Resolved]
  - Haemorrhagic stroke [Recovering/Resolving]
  - Brain injury [Not Recovered/Not Resolved]
